FAERS Safety Report 24286849 (Version 2)
Quarter: 2025Q1

REPORT INFORMATION
  Report Type: Spontaneous
  Country: CA (occurrence: CA)
  Receive Date: 20240905
  Receipt Date: 20250310
  Transmission Date: 20250409
  Serious: Yes (Death)
  Sender: ABBVIE
  Company Number: CA-LUNDBECK-DKLU4003714

PATIENT
  Age: 25 Year
  Sex: Male

DRUGS (1)
  1. CITALOPRAM [Suspect]
     Active Substance: CITALOPRAM
     Indication: Antidepressant therapy
     Route: 065

REACTIONS (1)
  - Completed suicide [Fatal]
